FAERS Safety Report 14458559 (Version 2)
Quarter: 2018Q2

REPORT INFORMATION
  Report Type: Other
  Country: CA (occurrence: CA)
  Receive Date: 20180130
  Receipt Date: 20180422
  Transmission Date: 20180711
  Serious: Yes (Other)
  Sender: FDA-Public Use
  Company Number: CA-APOTEX-2018AP005591

PATIENT
  Age: 62 Year
  Sex: Female

DRUGS (1)
  1. SALBUTAMOL [Suspect]
     Active Substance: ALBUTEROL
     Indication: PRODUCT USED FOR UNKNOWN INDICATION
     Dosage: UNK
     Route: 065

REACTIONS (13)
  - Major depression [Unknown]
  - Bronchospasm [Unknown]
  - Hypertension [Unknown]
  - Asthma [Unknown]
  - Influenza [Unknown]
  - Pneumonia [Unknown]
  - Pulmonary embolism [Unknown]
  - Carpal tunnel syndrome [Unknown]
  - Arthritis [Unknown]
  - Fibromyalgia [Unknown]
  - Sarcoidosis [Unknown]
  - Blood pressure increased [Unknown]
  - Chronic sinusitis [Unknown]
